FAERS Safety Report 13201362 (Version 3)
Quarter: 2017Q1

REPORT INFORMATION
  Report Type: Report from Study
  Country: JP (occurrence: JP)
  Receive Date: 20170209
  Receipt Date: 20170227
  Transmission Date: 20170428
  Serious: Yes (Hospitalization)
  Sender: FDA-Public Use
  Company Number: JP-AMGEN-JPNCT2016038318

PATIENT
  Age: 74 Year
  Sex: Male
  Weight: 58.4 kg

DRUGS (31)
  1. PANITUMUMAB [Suspect]
     Active Substance: PANITUMUMAB
     Dosage: 350 MG, Q2WK
     Route: 041
     Dates: start: 20160329, end: 20160412
  2. ELPLAT [Suspect]
     Active Substance: OXALIPLATIN
     Dosage: 68 MG/M2, Q2WEEKS
     Route: 041
     Dates: start: 20160621, end: 20160621
  3. 5-FU [Suspect]
     Active Substance: FLUOROURACIL
     Dosage: 650 MG, Q2WK
     Route: 040
     Dates: start: 20160510, end: 20160510
  4. 5-FU [Suspect]
     Active Substance: FLUOROURACIL
     Dosage: 2000 MG/M2, Q2WK
     Route: 041
     Dates: start: 20160524, end: 20160524
  5. 5-FU [Suspect]
     Active Substance: FLUOROURACIL
     Dosage: 320 MG/M2, Q2WK
     Route: 040
     Dates: start: 20160719, end: 20160719
  6. ELPLAT [Suspect]
     Active Substance: OXALIPLATIN
     Dosage: 130 MG, Q2WEEKS
     Route: 041
     Dates: start: 20160329, end: 20160412
  7. CALCIUM LEVOFOLINATE [Suspect]
     Active Substance: LEVOLEUCOVORIN CALCIUM
     Indication: COLON CANCER
     Dosage: 325 MG, Q2WEEKS
     Route: 041
     Dates: start: 20160126, end: 20160301
  8. CALCIUM LEVOFOLINATE [Suspect]
     Active Substance: LEVOLEUCOVORIN CALCIUM
     Dosage: 325 MG, Q2WEEKS
     Route: 041
     Dates: start: 20160329, end: 20160412
  9. CALCIUM LEVOFOLINATE [Suspect]
     Active Substance: LEVOLEUCOVORIN CALCIUM
     Dosage: UNK UNK, Q2WEEKS
     Route: 041
     Dates: start: 20160621, end: 20160621
  10. CALCIUM LEVOFOLINATE [Suspect]
     Active Substance: LEVOLEUCOVORIN CALCIUM
     Dosage: UNK
     Route: 041
     Dates: start: 20160914
  11. 5-FU [Suspect]
     Active Substance: FLUOROURACIL
     Dosage: 650 MG, Q2WK
     Route: 040
     Dates: start: 20160329, end: 20160412
  12. 5-FU [Suspect]
     Active Substance: FLUOROURACIL
     Dosage: 2000 MG/M2, Q2WK
     Route: 041
     Dates: start: 20160719, end: 20160719
  13. PANITUMUMAB [Suspect]
     Active Substance: PANITUMUMAB
     Dosage: 350 MG, Q2WK
     Route: 041
     Dates: start: 20160510, end: 20160524
  14. ELPLAT [Suspect]
     Active Substance: OXALIPLATIN
     Indication: COLON CANCER
     Dosage: 130 MG, Q2WEEKS
     Route: 041
     Dates: start: 20160126, end: 20160301
  15. ELPLAT [Suspect]
     Active Substance: OXALIPLATIN
     Dosage: 130 MG, Q2WEEKS
     Route: 041
     Dates: start: 20160510, end: 20160510
  16. ELPLAT [Suspect]
     Active Substance: OXALIPLATIN
     Dosage: 68 MG/M2, Q2WEEKS
     Route: 041
     Dates: start: 20160524, end: 20160524
  17. 5-FU [Suspect]
     Active Substance: FLUOROURACIL
     Dosage: UNK
     Route: 042
     Dates: start: 20160914
  18. PANITUMUMAB [Suspect]
     Active Substance: PANITUMUMAB
     Indication: COLON CANCER
     Dosage: 350 MG, Q2WK
     Route: 041
     Dates: start: 20160126, end: 20160301
  19. CALCIUM LEVOFOLINATE [Suspect]
     Active Substance: LEVOLEUCOVORIN CALCIUM
     Dosage: 325 MG, Q2WEEKS
     Route: 041
     Dates: start: 20160510, end: 20160510
  20. 5-FU [Suspect]
     Active Substance: FLUOROURACIL
     Dosage: 3900 MG, Q2WEEKS
     Route: 041
     Dates: start: 20160126, end: 20160301
  21. 5-FU [Suspect]
     Active Substance: FLUOROURACIL
     Dosage: 3900 MG, Q2WEEKS
     Route: 041
     Dates: start: 20160329, end: 20160412
  22. 5-FU [Suspect]
     Active Substance: FLUOROURACIL
     Dosage: 320 MG/M2, Q2WK
     Route: 040
     Dates: start: 20160621, end: 20160621
  23. CALCIUM LEVOFOLINATE [Suspect]
     Active Substance: LEVOLEUCOVORIN CALCIUM
     Dosage: UNK UNK, Q2WEEKS
     Route: 041
     Dates: start: 20160524, end: 20160524
  24. 5-FU [Suspect]
     Active Substance: FLUOROURACIL
     Indication: COLON CANCER
     Dosage: 650 MG, Q2WK
     Route: 040
     Dates: start: 20160126, end: 20160301
  25. 5-FU [Suspect]
     Active Substance: FLUOROURACIL
     Dosage: 3900 MG, Q2WK
     Route: 041
     Dates: start: 20160510, end: 20160510
  26. 5-FU [Suspect]
     Active Substance: FLUOROURACIL
     Dosage: 320 MG/M2, Q2WK
     Route: 040
     Dates: start: 20160524, end: 20160524
  27. 5-FU [Suspect]
     Active Substance: FLUOROURACIL
     Dosage: 2000 MG/M2, Q2WK
     Route: 041
     Dates: start: 20160621, end: 20160621
  28. PANITUMUMAB [Suspect]
     Active Substance: PANITUMUMAB
     Dosage: 350 MG, Q2WK
     Route: 041
     Dates: start: 20160621, end: 20160621
  29. PANITUMUMAB [Suspect]
     Active Substance: PANITUMUMAB
     Dosage: 350 MG, Q2WK
     Route: 041
     Dates: start: 20160719, end: 20160719
  30. CALCIUM LEVOFOLINATE [Suspect]
     Active Substance: LEVOLEUCOVORIN CALCIUM
     Dosage: UNK UNK, Q2WEEKS
     Route: 041
     Dates: start: 20160719, end: 20160719
  31. ELPLAT [Suspect]
     Active Substance: OXALIPLATIN
     Dosage: 68 MG/M2, Q2WEEKS
     Route: 041
     Dates: start: 20160719, end: 20160719

REACTIONS (13)
  - Dermatitis acneiform [Recovered/Resolved]
  - Stomatitis [Recovered/Resolved]
  - Dry skin [Unknown]
  - Decreased appetite [Unknown]
  - Peripheral sensory neuropathy [Unknown]
  - Urinary tract infection [Recovered/Resolved]
  - Dizziness [Recovered/Resolved]
  - Palpitations [Unknown]
  - Fatigue [Unknown]
  - Dermatitis acneiform [Unknown]
  - Diarrhoea [Unknown]
  - Angina pectoris [Recovering/Resolving]
  - Dyspnoea [Unknown]

NARRATIVE: CASE EVENT DATE: 20160303
